FAERS Safety Report 10256471 (Version 1)
Quarter: 2014Q2

REPORT INFORMATION
  Report Type: Report from Study
  Country: DE (occurrence: DE)
  Receive Date: 20140624
  Receipt Date: 20140624
  Transmission Date: 20141212
  Serious: Yes (Hospitalization)
  Sender: FDA-Public Use
  Company Number: DE-JNJFOC-20130703777

PATIENT
  Sex: Female
  Weight: 53 kg

DRUGS (7)
  1. XARELTO [Suspect]
     Indication: ATRIAL FIBRILLATION
     Route: 048
  2. XARELTO [Suspect]
     Indication: CEREBROVASCULAR ACCIDENT PROPHYLAXIS
     Route: 048
  3. DIGIMERCK [Concomitant]
     Route: 065
     Dates: start: 2012
  4. PANTOPRAZOLE [Concomitant]
     Route: 065
     Dates: start: 201108
  5. TORASEMID [Concomitant]
     Route: 065
     Dates: start: 201108
  6. METOPROLOL [Concomitant]
     Route: 065
     Dates: start: 201108, end: 20130220
  7. METOPROLOL [Concomitant]
     Route: 065
     Dates: start: 20130221

REACTIONS (1)
  - Transient ischaemic attack [Recovered/Resolved]
